FAERS Safety Report 19994438 (Version 1)
Quarter: 2021Q4

REPORT INFORMATION
  Report Type: Spontaneous
  Country: IN (occurrence: IN)
  Receive Date: 20211025
  Receipt Date: 20211025
  Transmission Date: 20220304
  Serious: Yes (Other)
  Sender: FDA-Public Use
  Company Number: IN-PFIZER INC-2021376015

PATIENT
  Age: 49 Year
  Sex: Male

DRUGS (14)
  1. IRINOTECAN [Suspect]
     Active Substance: IRINOTECAN
     Indication: Colorectal cancer
     Dosage: 300 MG
     Route: 042
     Dates: start: 20210329
  2. IRINOTECAN [Suspect]
     Active Substance: IRINOTECAN
     Dosage: 280 MG
  3. IRINOTECAN [Suspect]
     Active Substance: IRINOTECAN
     Dosage: 140 MG
     Route: 042
  4. BEVACIZUMAB [Concomitant]
     Active Substance: BEVACIZUMAB
     Dosage: UNK
     Dates: start: 20210330
  5. BEVACIZUMAB [Concomitant]
     Active Substance: BEVACIZUMAB
     Dosage: 300 MG
     Dates: start: 20210705
  6. IRINOTECAN [Concomitant]
     Active Substance: IRINOTECAN
     Dosage: 240 MG
     Dates: start: 20210705
  7. IRINOTECAN [Concomitant]
     Active Substance: IRINOTECAN
     Dosage: 240 MG
     Dates: start: 20210705, end: 20210729
  8. OXALIPLATIN [Concomitant]
     Active Substance: OXALIPLATIN
     Dosage: 100 MG
  9. OXALIPLATIN [Concomitant]
     Active Substance: OXALIPLATIN
     Dosage: 140 MG
     Dates: start: 20210729
  10. LEUCOVORIN [Concomitant]
     Active Substance: LEUCOVORIN
     Dosage: 650 MG
  11. LEUCOVORIN [Concomitant]
     Active Substance: LEUCOVORIN
     Dosage: 600 MG
     Dates: start: 20210729
  12. FLUOROURACIL [Concomitant]
     Active Substance: FLUOROURACIL
     Dosage: 3750MG INFUSION OVER 44 HOURS
  13. FLUOROURACIL [Concomitant]
     Active Substance: FLUOROURACIL
     Dosage: 250MG INFUSION OVER 44 HOURS
     Dates: start: 20210729
  14. NIVOLUMAB [Concomitant]
     Active Substance: NIVOLUMAB
     Dosage: 240 MG
     Dates: start: 20210729

REACTIONS (5)
  - Intestinal obstruction [Unknown]
  - Intra-abdominal fluid collection [Unknown]
  - Hydronephrosis [Unknown]
  - Weight decreased [Unknown]
  - Neoplasm progression [Unknown]
